FAERS Safety Report 17798898 (Version 2)
Quarter: 2020Q2

REPORT INFORMATION
  Report Type: Spontaneous
  Country: US (occurrence: US)
  Receive Date: 20200518
  Receipt Date: 20200615
  Transmission Date: 20200714
  Serious: Yes (Death, Other)
  Sender: FDA-Public Use
  Company Number: US-SHIRE-US202016278

PATIENT
  Age: 69 Year
  Sex: Male
  Weight: 78 kg

DRUGS (16)
  1. APAP [Concomitant]
     Active Substance: ACETAMINOPHEN
     Indication: PYREXIA
  2. OBIZUR [Suspect]
     Active Substance: ANTIHEMOPHILIC FACTOR PORCINE, B-DOMAIN TRUNCATED RECOMBINANT
     Dosage: 9215 UNITS
     Route: 042
     Dates: start: 20200501, end: 20200507
  3. HYDREA [Concomitant]
     Active Substance: HYDROXYUREA
     Indication: PRODUCT USED FOR UNKNOWN INDICATION
  4. OBIZUR [Suspect]
     Active Substance: ANTIHEMOPHILIC FACTOR PORCINE, B-DOMAIN TRUNCATED RECOMBINANT
     Dosage: 9215 UNITS
     Route: 042
     Dates: start: 20200501, end: 20200507
  5. OBIZUR [Suspect]
     Active Substance: ANTIHEMOPHILIC FACTOR PORCINE, B-DOMAIN TRUNCATED RECOMBINANT
     Dosage: 9215 UNITS
     Route: 042
     Dates: start: 20200501, end: 20200507
  6. APAP [Concomitant]
     Active Substance: ACETAMINOPHEN
     Indication: PAIN
  7. APAP [Concomitant]
     Active Substance: ACETAMINOPHEN
     Indication: UNEVALUABLE EVENT
  8. PREDNISONE. [Concomitant]
     Active Substance: PREDNISONE
     Indication: ANTI FACTOR VIII ANTIBODY POSITIVE
  9. OBIZUR [Suspect]
     Active Substance: ANTIHEMOPHILIC FACTOR PORCINE, B-DOMAIN TRUNCATED RECOMBINANT
     Indication: ACQUIRED HAEMOPHILIA
     Dosage: 9500 INTERNATIONAL UNIT
     Route: 065
  10. ACYCLOVIR [ACICLOVIR] [Concomitant]
     Active Substance: ACYCLOVIR
     Indication: ANTIVIRAL TREATMENT
  11. FENTANYL. [Concomitant]
     Active Substance: FENTANYL
     Indication: PAIN
  12. FAMOTIDINE. [Concomitant]
     Active Substance: FAMOTIDINE
     Indication: GASTROOESOPHAGEAL REFLUX DISEASE
  13. NOREPIN [Concomitant]
     Indication: HYPOTENSION
  14. FUROSEMIDE. [Concomitant]
     Active Substance: FUROSEMIDE
     Indication: OEDEMA
  15. DIPHENHYDRAMINE. [Concomitant]
     Active Substance: DIPHENHYDRAMINE
     Indication: UNEVALUABLE EVENT
  16. FLUCONAZOLE. [Concomitant]
     Active Substance: FLUCONAZOLE
     Indication: ANTIFUNGAL TREATMENT

REACTIONS (2)
  - Respiratory disorder [Fatal]
  - Death [Fatal]

NARRATIVE: CASE EVENT DATE: 20200501
